FAERS Safety Report 18490845 (Version 1)
Quarter: 2020Q4

REPORT INFORMATION
  Report Type: Report from Study
  Country: GB (occurrence: GB)
  Receive Date: 20201111
  Receipt Date: 20201111
  Transmission Date: 20210114
  Serious: Yes (Other)
  Sender: FDA-Public Use
  Company Number: GB-PFIZER INC-2020433411

PATIENT

DRUGS (15)
  1. METOCLOPRAMIDE. [Concomitant]
     Active Substance: METOCLOPRAMIDE
     Indication: ANTIEMETIC SUPPORTIVE CARE
     Dosage: 10 MG, 3X/DAY
     Dates: start: 20191225
  2. ALLOPURINOL. [Concomitant]
     Active Substance: ALLOPURINOL
     Dosage: 190 MG, 3X/DAY
     Dates: start: 20191218, end: 20191229
  3. GEMTUZUMAB OZOGAMICIN [Suspect]
     Active Substance: GEMTUZUMAB OZOGAMICIN
     Indication: ACUTE MYELOID LEUKAEMIA
     Dosage: 5 MG (OTHER)
     Route: 042
     Dates: start: 20191227
  4. TRANEXAMIC ACID. [Concomitant]
     Active Substance: TRANEXAMIC ACID
     Indication: MENSTRUAL DISORDER
     Dosage: 1 G, 3X/DAY
     Dates: start: 20191218, end: 20191223
  5. NORETHISTERONE [Concomitant]
     Active Substance: NORETHINDRONE
     Indication: MENSTRUATION DELAYED
     Dosage: 10 MG, 3X/DAY
     Dates: start: 20191218, end: 20191220
  6. DEXAMETHASONE. [Concomitant]
     Active Substance: DEXAMETHASONE
     Indication: ANTIEMETIC SUPPORTIVE CARE
     Dosage: 6 MG, 3X/DAY
     Dates: start: 20191224, end: 20191225
  7. TAZOCIN [Concomitant]
     Active Substance: PIPERACILLIN SODIUM\TAZOBACTAM SODIUM
     Indication: FEBRILE NEUTROPENIA
     Dosage: 4.5 G, 4X/DAY
     Dates: start: 20191218, end: 20191222
  8. TAZOCIN [Concomitant]
     Active Substance: PIPERACILLIN SODIUM\TAZOBACTAM SODIUM
     Indication: PYREXIA
     Dosage: 4.5 G, 4X/DAY
     Dates: start: 20191227, end: 20191229
  9. AMBISONE [Concomitant]
     Active Substance: AMPHOTERICIN B
     Indication: PROPHYLAXIS
     Dosage: 70 MG (3X WEEKLY)
     Dates: start: 20191218, end: 20200108
  10. MITOXANTRONE HCL [Suspect]
     Active Substance: MITOXANTRONE HYDROCHLORIDE
     Indication: ACUTE MYELOID LEUKAEMIA
     Dosage: 23 MG/M2, 1X/DAY
     Route: 042
     Dates: start: 20191224
  11. ONDANSETRON [Concomitant]
     Active Substance: ONDANSETRON
     Indication: ANTIEMETIC SUPPORTIVE CARE
     Dosage: 4 MG, 3X/DAY
     Dates: start: 20191225
  12. CYTARABINE. [Concomitant]
     Active Substance: CYTARABINE
     Indication: CHEMOTHERAPY
     Dosage: 190 MG, 2X/DAY
     Dates: start: 20191224, end: 20191230
  13. COTRIMOXAZOLE [Concomitant]
     Active Substance: SULFAMETHOXAZOLE\TRIMETHOPRIM
     Indication: PROPHYLAXIS
     Dosage: 480 MG, 2X/DAY
     Dates: start: 20191221
  14. NORETHISTERONE [Concomitant]
     Active Substance: NORETHINDRONE
     Dosage: 10 MG, 3X/DAY
     Dates: start: 20191220
  15. BUSCOPAN [Concomitant]
     Active Substance: BUTYLSCOPOLAMINE BROMIDE
     Indication: ABDOMINAL PAIN
     Dosage: 10 MG, 3X/DAY
     Dates: start: 20191227, end: 20200110

REACTIONS (6)
  - Platelet count decreased [Recovered/Resolved]
  - Acute kidney injury [Recovered/Resolved]
  - Abdominal pain [Recovered/Resolved]
  - Hypertension [Recovered/Resolved]
  - Febrile neutropenia [Recovered/Resolved]
  - Anaemia [Recovered/Resolved]

NARRATIVE: CASE EVENT DATE: 20191225
